FAERS Safety Report 9979918 (Version 1)
Quarter: 2014Q1

REPORT INFORMATION
  Report Type: Report from Study
  Country: US (occurrence: US)
  Receive Date: 20140306
  Receipt Date: 20140306
  Transmission Date: 20141002
  Serious: No
  Sender: FDA-Public Use
  Company Number: US-ABBVIE-13P-163-1170497-00

PATIENT
  Age: 39 Year
  Sex: Female

DRUGS (1)
  1. HUMIRA [Suspect]
     Indication: POLYARTHRITIS
     Dates: start: 201307

REACTIONS (5)
  - Off label use [Unknown]
  - Polyarthritis [Unknown]
  - Autoimmune thyroiditis [Not Recovered/Not Resolved]
  - Conjunctivitis [Not Recovered/Not Resolved]
  - Myalgia [Not Recovered/Not Resolved]
